FAERS Safety Report 6597756-9 (Version None)
Quarter: 2010Q1

REPORT INFORMATION
  Report Type: 
  Country: None (occurrence: None)
  Receive Date: 20100216
  Receipt Date: 20091030
  Transmission Date: 20100710
  Serious: Yes (Other)
  Sender: FDA-Public Use
  Company Number: 2010000768

PATIENT
  Age: 39 Year
  Sex: Male

DRUGS (2)
  1. TREANDA [Suspect]
     Indication: B-CELL LYMPHOMA
     Dosage: 90 MG/M2 (90 MG/M2, 1 IN 1 D), INTRAVENOUS
     Route: 042
     Dates: start: 20091028, end: 20091028
  2. RITUXIMAB (RITUXIMAB) [Suspect]
     Dates: start: 20091028

REACTIONS (4)
  - ERYTHEMA [None]
  - INFLAMMATION [None]
  - MUSCULOSKELETAL DISCOMFORT [None]
  - PAIN [None]
